FAERS Safety Report 5051832-0 (Version None)
Quarter: 2006Q3

REPORT INFORMATION
  Report Type: 
  Country: None (occurrence: None)
  Receive Date: 20060712
  Receipt Date: 20060712
  Transmission Date: 20061208
  Serious: No
  Sender: FDA-Public Use
  Company Number: None

PATIENT
  Sex: Male
  Weight: 71.2147 kg

DRUGS (13)
  1. ZOMETA [Suspect]
     Indication: MULTIPLE MYELOMA
     Dosage: 4 MG IV Q28 DAYS
     Route: 042
     Dates: start: 20050408
  2. ZOMETA [Suspect]
     Indication: MULTIPLE MYELOMA
     Dosage: 4 MG IV Q28 DAYS
     Route: 042
     Dates: start: 20050509
  3. ZOMETA [Suspect]
     Indication: MULTIPLE MYELOMA
     Dosage: 4 MG IV Q28 DAYS
     Route: 042
     Dates: start: 20050607
  4. ZOMETA [Suspect]
     Indication: MULTIPLE MYELOMA
     Dosage: 4 MG IV Q28 DAYS
     Route: 042
     Dates: start: 20050705
  5. ZOMETA [Suspect]
     Indication: MULTIPLE MYELOMA
     Dosage: 4 MG IV Q28 DAYS
     Route: 042
     Dates: start: 20050802
  6. ZOMETA [Suspect]
     Indication: MULTIPLE MYELOMA
     Dosage: 4 MG IV Q28 DAYS
     Route: 042
     Dates: start: 20050830
  7. ZOMETA [Suspect]
     Indication: MULTIPLE MYELOMA
     Dosage: 4 MG IV Q28 DAYS
     Route: 042
     Dates: start: 20050923
  8. ZOMETA [Suspect]
     Indication: MULTIPLE MYELOMA
     Dosage: 4 MG IV Q28 DAYS
     Route: 042
     Dates: start: 20051025
  9. ZOMETA [Suspect]
     Indication: MULTIPLE MYELOMA
     Dosage: 4 MG IV Q28 DAYS
     Route: 042
     Dates: start: 20051121
  10. ZOMETA [Suspect]
     Indication: MULTIPLE MYELOMA
     Dosage: 4 MG IV Q28 DAYS
     Route: 042
     Dates: start: 20051219
  11. ZOMETA [Suspect]
     Indication: MULTIPLE MYELOMA
     Dosage: 4 MG IV Q28 DAYS
     Route: 042
     Dates: start: 20060116
  12. THALIDOMIDE [Concomitant]
  13. DECADRON [Concomitant]

REACTIONS (3)
  - GINGIVAL INJURY [None]
  - JAW DISORDER [None]
  - SKIN ULCER [None]
